FAERS Safety Report 6368651-5 (Version None)
Quarter: 2009Q3

REPORT INFORMATION
  Report Type: 
  Country: None (occurrence: None)
  Receive Date: 20090917
  Receipt Date: 20090917
  Transmission Date: 20100115
  Serious: Yes (Other)
  Sender: FDA-Public Use
  Company Number: None

PATIENT
  Age: 59 Year
  Sex: Female
  Weight: 85.2762 kg

DRUGS (1)
  1. SIMVASTATIN [Suspect]
     Indication: BLOOD CHOLESTEROL INCREASED
     Dosage: 40 MG DAILY PO
     Route: 048
     Dates: start: 20030115, end: 20090914

REACTIONS (7)
  - ALOPECIA [None]
  - DRY SKIN [None]
  - HEPATIC ENZYME INCREASED [None]
  - JOINT SWELLING [None]
  - NAIL GROWTH ABNORMAL [None]
  - OEDEMA PERIPHERAL [None]
  - UNEVALUABLE EVENT [None]
